FAERS Safety Report 8167412-4 (Version None)
Quarter: 2012Q1

REPORT INFORMATION
  Report Type: 
  Country: None (occurrence: None)
  Receive Date: 20120227
  Receipt Date: 20120216
  Transmission Date: 20120608
  Serious: Yes (Other)
  Sender: FDA-Public Use
  Company Number: ZA-ELI_LILLY_AND_COMPANY-ZA201202005938

PATIENT
  Age: 75 Year
  Sex: Male

DRUGS (1)
  1. CIALIS [Suspect]
     Indication: ERECTILE DYSFUNCTION
     Dosage: 5 MG, UNK
     Route: 048
     Dates: start: 20111101

REACTIONS (2)
  - PROSTATECTOMY [None]
  - BACK PAIN [None]
